FAERS Safety Report 9221489 (Version 1)
Quarter: 2013Q2

REPORT INFORMATION
  Report Type: Spontaneous
  Country: US (occurrence: None)
  Receive Date: 20130408
  Receipt Date: 20130408
  Transmission Date: 20140414
  Serious: Yes (Other)
  Sender: FDA-Public Use
  Company Number: None

PATIENT
  Age: 27 Year
  Sex: Female
  Weight: 65.77 kg

DRUGS (5)
  1. CYMBALTA [Suspect]
     Indication: ARTHRALGIA
     Route: 048
     Dates: start: 20121201, end: 20130302
  2. CYMBALTA [Suspect]
     Indication: MYOFASCIAL PAIN SYNDROME
     Route: 048
     Dates: start: 20121201, end: 20130302
  3. NEURONTIN [Concomitant]
  4. MELOXICAM [Concomitant]
  5. CLONAZEPAM [Concomitant]

REACTIONS (5)
  - Paraesthesia [None]
  - Vertigo [None]
  - Nausea [None]
  - Hyperchlorhydria [None]
  - Reflexes abnormal [None]
